FAERS Safety Report 4498967-9 (Version None)
Quarter: 2004Q4

REPORT INFORMATION
  Report Type: 
  Country: None (occurrence: None)
  Receive Date: 20041108
  Receipt Date: 20041029
  Transmission Date: 20050328
  Serious: Yes (Other)
  Sender: FDA-Public Use
  Company Number: 200410978BVD

PATIENT
  Age: 68 Year
  Sex: 0
  Weight: 70 kg

DRUGS (1)
  1. LEVITRA [Suspect]
     Dosage: 10 MG, TOTAL DAILY, ORAL
     Route: 048
     Dates: start: 20041012

REACTIONS (3)
  - FAECAL INCONTINENCE [None]
  - HAEMATOCHEZIA [None]
  - URINARY INCONTINENCE [None]
